FAERS Safety Report 11485668 (Version 1)
Quarter: 2015Q3

REPORT INFORMATION
  Report Type: Spontaneous
  Country: US (occurrence: None)
  Receive Date: 20150909
  Receipt Date: 20150909
  Transmission Date: 20151125
  Serious: Yes (Other)
  Sender: FDA-Public Use
  Company Number: None

PATIENT
  Age: 80 Year
  Sex: Male
  Weight: 72.58 kg

DRUGS (9)
  1. ATORVASTATIN [Concomitant]
     Active Substance: ATORVASTATIN
  2. FINASTERIDE. [Concomitant]
     Active Substance: FINASTERIDE
  3. LOW DOSE ASPIRIN [Concomitant]
     Active Substance: ASPIRIN
  4. ZIAC [Concomitant]
     Active Substance: BISOPROLOL FUMARATE\HYDROCHLOROTHIAZIDE
  5. OXYBUTYMIN [Concomitant]
  6. METAMUCIL [Concomitant]
     Active Substance: PLANTAGO SEED
  7. MYRBETRIQ [Suspect]
     Active Substance: MIRABEGRON
     Indication: HYPERTONIC BLADDER
     Dosage: ONE PILL ONCE DAILY TAKEN BY MOUTH
     Route: 048
     Dates: start: 20131231, end: 20150908
  8. SYNTHROID [Concomitant]
     Active Substance: LEVOTHYROXINE SODIUM
  9. LOSARTAN. [Concomitant]
     Active Substance: LOSARTAN

REACTIONS (1)
  - Weight decreased [None]

NARRATIVE: CASE EVENT DATE: 20150908
